FAERS Safety Report 7912460-X (Version None)
Quarter: 2011Q4

REPORT INFORMATION
  Report Type: 
  Country: None (occurrence: None)
  Receive Date: 20111114
  Receipt Date: 20111104
  Transmission Date: 20120403
  Serious: Yes (Other)
  Sender: FDA-Public Use
  Company Number: US-BAYER-2011-109399

PATIENT
  Age: 26 Year
  Sex: Female
  Weight: 63.492 kg

DRUGS (11)
  1. YASMIN [Suspect]
     Indication: CONTRACEPTION
     Dosage: UNK
     Dates: start: 20061101, end: 20090801
  2. YASMIN [Suspect]
     Indication: MENSTRUATION IRREGULAR
  3. YAZ [Suspect]
     Indication: MENSTRUATION IRREGULAR
  4. BUTALBITAL [Concomitant]
     Indication: MIGRAINE
     Dosage: UNK
     Dates: start: 20050101
  5. YAZ [Suspect]
     Indication: CONTRACEPTION
     Dosage: UNK
     Dates: start: 20060701, end: 20090901
  6. YAZ [Suspect]
     Indication: FUNGAL INFECTION
  7. YASMIN [Suspect]
     Indication: FUNGAL INFECTION
  8. HYDROCODONE BITARTRATE [Concomitant]
     Indication: ANALGESIC THERAPY
     Dosage: UNK
     Dates: start: 20080601, end: 20081001
  9. ZOLOFT [Concomitant]
     Indication: DEPRESSION
     Dosage: UNK
     Dates: start: 19980101, end: 20080101
  10. TERCONAZOLE [Concomitant]
     Dosage: 0.4 %, UNK
     Dates: start: 20080428
  11. CAFFEINE CITRATE [Concomitant]

REACTIONS (5)
  - DIARRHOEA [None]
  - ABDOMINAL PAIN [None]
  - ABDOMINAL PAIN UPPER [None]
  - CHOLECYSTITIS CHRONIC [None]
  - BILIARY DYSKINESIA [None]
